FAERS Safety Report 24575644 (Version 1)
Quarter: 2024Q4

REPORT INFORMATION
  Report Type: Spontaneous
  Country: US (occurrence: None)
  Receive Date: 20241101
  Receipt Date: 20241101
  Transmission Date: 20250115
  Serious: Yes (unspecified)
  Sender: Public
  Company Number: None

PATIENT
  Age: 75 Year
  Sex: Male
  Weight: 97 kg

DRUGS (1)
  1. INFLIXIMAB-ABDA [Suspect]
     Active Substance: INFLIXIMAB-ABDA
     Indication: Crohn^s disease
     Dates: start: 20240701, end: 20240701

REACTIONS (7)
  - Angina pectoris [None]
  - Dyspnoea [None]
  - Pain [None]
  - Infusion related reaction [None]
  - Headache [None]
  - Neck pain [None]
  - Spinal pain [None]

NARRATIVE: CASE EVENT DATE: 20240701
